FAERS Safety Report 20036416 (Version 2)
Quarter: 2022Q1

REPORT INFORMATION
  Report Type: Spontaneous
  Country: US (occurrence: US)
  Receive Date: 20211105
  Receipt Date: 20220307
  Transmission Date: 20220424
  Serious: No
  Sender: FDA-Public Use
  Company Number: US-BoehringerIngelheim-2021-BI-136405

PATIENT
  Age: 47 Year
  Sex: Female

DRUGS (1)
  1. SPIRIVA RESPIMAT [Suspect]
     Active Substance: TIOTROPIUM BROMIDE
     Indication: Asthma
     Dosage: 2 PUFFS ONCE DAILY
     Route: 065

REACTIONS (3)
  - Oral discomfort [Recovered/Resolved]
  - Product quality issue [Unknown]
  - Lip pain [Recovered/Resolved]

NARRATIVE: CASE EVENT DATE: 20211102
